FAERS Safety Report 7058332-7 (Version None)
Quarter: 2010Q4

REPORT INFORMATION
  Report Type: 
  Country: None (occurrence: None)
  Receive Date: 20101022
  Receipt Date: 20101014
  Transmission Date: 20110411
  Serious: Yes (Hospitalization, Other)
  Sender: FDA-Public Use
  Company Number: US-JNJFOC-20100704689

PATIENT
  Sex: Female

DRUGS (13)
  1. LEVAQUIN [Suspect]
     Indication: PNEUMONIA PRIMARY ATYPICAL
     Route: 048
  2. LEVAQUIN [Suspect]
     Route: 048
  3. LEVAQUIN [Suspect]
     Route: 048
  4. LEVAQUIN [Suspect]
     Route: 048
  5. LEVAQUIN [Suspect]
     Route: 048
  6. LEVAQUIN [Suspect]
     Indication: BRONCHITIS
     Route: 048
  7. LEVAQUIN [Suspect]
     Route: 048
  8. LEVAQUIN [Suspect]
     Route: 048
  9. LEVAQUIN [Suspect]
     Route: 048
  10. LEVAQUIN [Suspect]
     Route: 048
  11. PREDNISOLONE [Suspect]
     Indication: PAIN
     Route: 048
  12. STEROIDS NOS [Suspect]
     Indication: INTERSTITIAL LUNG DISEASE
     Route: 065
  13. STEROIDS NOS [Suspect]
     Route: 042

REACTIONS (7)
  - LIGAMENT RUPTURE [None]
  - MENISCUS LESION [None]
  - MUSCLE STRAIN [None]
  - TENDON INJURY [None]
  - TENDON RUPTURE [None]
  - TENDONITIS [None]
  - TENOSYNOVITIS [None]
